FAERS Safety Report 16809177 (Version 1)
Quarter: 2019Q4

REPORT INFORMATION
  Report Type: Spontaneous
  Country: US (occurrence: US)
  Receive Date: 20190914
  Receipt Date: 20190914
  Transmission Date: 20200122
  Serious: No
  Sender: FDA-Public Use
  Company Number: None

PATIENT
  Age: 59 Year
  Sex: Female
  Weight: 70.65 kg

DRUGS (24)
  1. MINIVELLE [Concomitant]
     Active Substance: ESTRADIOL
  2. FLECAINIDE ACET TABS [Concomitant]
  3. CYTOMEL [Concomitant]
     Active Substance: LIOTHYRONINE SODIUM
  4. TOPIRAMATE. [Concomitant]
     Active Substance: TOPIRAMATE
  5. ELETRIPTAN HBR [Concomitant]
     Active Substance: ELETRIPTAN HYDROBROMIDE
  6. REPLAX TABS [Concomitant]
  7. VITAMIN B12 [Concomitant]
     Active Substance: CYANOCOBALAMIN
  8. B100 COMPLEX [Concomitant]
     Active Substance: MINERALS\VITAMINS
  9. CLARITIN [Concomitant]
     Active Substance: LORATADINE
  10. MAGNESIUM [Concomitant]
     Active Substance: MAGNESIUM
  11. INDEROL [Concomitant]
  12. ZOLOFT [Concomitant]
     Active Substance: SERTRALINE HYDROCHLORIDE
  13. LIOTHYRONINE SOD [Concomitant]
     Active Substance: LIOTHYRONINE SODIUM
  14. TREXIMET [Concomitant]
     Active Substance: NAPROXEN SODIUM\SUMATRIPTAN SUCCINATE
  15. SERTRALINE HCL [Concomitant]
     Active Substance: SERTRALINE HYDROCHLORIDE
  16. NATURE THROID TABS [Concomitant]
  17. AIMOVIG [Suspect]
     Active Substance: ERENUMAB-AOOE
     Indication: MIGRAINE
     Dosage: ?          QUANTITY:1 INJECTION(S);OTHER FREQUENCY:MONTHLY;?
     Route: 058
     Dates: start: 20190725, end: 20190825
  18. TOPAMAZ [Concomitant]
  19. CAMBIA [Concomitant]
     Active Substance: DICLOFENAC POTASSIUM
  20. PROPRANOLOL HCL ER [Concomitant]
  21. PROGESTERONE CAPS [Concomitant]
  22. CLOBETASOL PROPIONATE. [Concomitant]
     Active Substance: CLOBETASOL PROPIONATE
  23. MULTIPLE VITAMIN [Concomitant]
     Active Substance: VITAMINS
  24. ZINC. [Concomitant]
     Active Substance: ZINC

REACTIONS (3)
  - Constipation [None]
  - Alopecia [None]
  - Hair texture abnormal [None]

NARRATIVE: CASE EVENT DATE: 20190827
